FAERS Safety Report 7484906-5 (Version None)
Quarter: 2011Q2

REPORT INFORMATION
  Report Type: 
  Country: None (occurrence: None)
  Receive Date: 20110517
  Receipt Date: 20110511
  Transmission Date: 20111010
  Serious: Yes (Death)
  Sender: FDA-Public Use
  Company Number: B0583532A

PATIENT
  Sex: Male

DRUGS (8)
  1. NOVOLIN 70/30 [Concomitant]
     Route: 058
     Dates: end: 20090627
  2. ZANTAC [Suspect]
     Indication: GASTRITIS
     Dosage: 150MG PER DAY
     Route: 048
     Dates: start: 20090101, end: 20090627
  3. LIVACT [Concomitant]
     Indication: LIVER DISORDER
     Dosage: 12.45G PER DAY
     Route: 048
     Dates: start: 20090526, end: 20090627
  4. AMOBAN [Concomitant]
     Indication: INSOMNIA
     Dosage: 7.5MG PER DAY
     Route: 048
     Dates: end: 20090627
  5. VASOPRESSOR [Concomitant]
  6. FUROSEMIDE [Concomitant]
     Indication: ASCITES
     Dosage: 20MG PER DAY
     Route: 050
     Dates: start: 20090623
  7. URSO 250 [Concomitant]
     Indication: LIVER DISORDER
     Dosage: 900MG PER DAY
     Route: 048
     Dates: start: 20090101, end: 20090627
  8. SPIRONOLACTONE [Suspect]
     Indication: ASCITES
     Dosage: 75MG PER DAY
     Route: 048
     Dates: start: 20090526, end: 20090627

REACTIONS (8)
  - TOXIC EPIDERMAL NECROLYSIS [None]
  - PAIN IN EXTREMITY [None]
  - BLISTER [None]
  - PNEUMONIA [None]
  - PYREXIA [None]
  - SEPSIS [None]
  - EPIDERMOLYSIS [None]
  - ERYTHEMA [None]
